FAERS Safety Report 10026240 (Version 1)
Quarter: 2014Q1

REPORT INFORMATION
  Report Type: Spontaneous
  Country: US (occurrence: US)
  Receive Date: 20140320
  Receipt Date: 20140320
  Transmission Date: 20141002
  Serious: No
  Sender: FDA-Public Use
  Company Number: US-ALLERGAN-1314194US

PATIENT
  Age: 76 Year
  Sex: Male

DRUGS (2)
  1. LUMIGAN 0.01% [Suspect]
     Indication: GLAUCOMA
     Dosage: 2 GTT, QHS
     Route: 047
  2. LATANOPROST [Concomitant]
     Indication: GLAUCOMA
     Dosage: 2 GTT, QD
     Route: 047
     Dates: start: 201306

REACTIONS (3)
  - Scleral hyperaemia [Unknown]
  - Eyelids pruritus [Unknown]
  - Ocular hyperaemia [Unknown]
